FAERS Safety Report 25300142 (Version 1)
Quarter: 2025Q2

REPORT INFORMATION
  Report Type: Spontaneous
  Country: CN (occurrence: CN)
  Receive Date: 20250512
  Receipt Date: 20250512
  Transmission Date: 20250717
  Serious: Yes (Hospitalization)
  Sender: GLAXOSMITHKLINE
  Company Number: CN-GSK-CN2025APC045294

PATIENT

DRUGS (2)
  1. LAMICTAL [Suspect]
     Active Substance: LAMOTRIGINE
     Indication: Perinatal depression
     Dosage: 50 MG, QD
     Route: 048
     Dates: start: 20250321, end: 20250331
  2. LITHIUM CARBONATE [Concomitant]
     Active Substance: LITHIUM CARBONATE
     Indication: Perinatal depression
     Dosage: 0.300 G, BID
     Route: 048
     Dates: start: 20250224, end: 20250331

REACTIONS (5)
  - Rash erythematous [Recovering/Resolving]
  - Erythema annulare [Recovering/Resolving]
  - Lip swelling [Recovering/Resolving]
  - Drug eruption [Recovering/Resolving]
  - Pruritus [Recovering/Resolving]

NARRATIVE: CASE EVENT DATE: 20250401
